FAERS Safety Report 23572506 (Version 1)
Quarter: 2024Q1

REPORT INFORMATION
  Report Type: Spontaneous
  Country: FR (occurrence: FR)
  Receive Date: 20240227
  Receipt Date: 20240227
  Transmission Date: 20240410
  Serious: Yes (Other)
  Sender: FDA-Public Use
  Company Number: FR-BRISTOL-MYERS SQUIBB COMPANY-2024-029311

PATIENT
  Age: 78 Year
  Sex: Female
  Weight: 67 kg

DRUGS (3)
  1. DEXAMETHASONE [Suspect]
     Active Substance: DEXAMETHASONE
     Indication: POEMS syndrome
     Route: 065
     Dates: start: 20180823
  2. DARATUMUMAB [Suspect]
     Active Substance: DARATUMUMAB
     Indication: POEMS syndrome
     Route: 065
     Dates: start: 20180823
  3. POMALIDOMIDE [Suspect]
     Active Substance: POMALIDOMIDE
     Indication: POEMS syndrome
     Route: 065
     Dates: start: 20180823

REACTIONS (2)
  - Malignant neoplasm progression [Unknown]
  - Off label use [Unknown]

NARRATIVE: CASE EVENT DATE: 20180823
